FAERS Safety Report 5742139-4 (Version None)
Quarter: 2008Q2

REPORT INFORMATION
  Report Type: 
  Country: None (occurrence: None)
  Receive Date: 20080514
  Receipt Date: 20080514
  Transmission Date: 20081010
  Serious: No
  Sender: FDA-Public Use
  Company Number: None

PATIENT
  Age: 88 Year
  Sex: Female
  Weight: 49.8957 kg

DRUGS (1)
  1. DIGITEK 0.125 MG [Suspect]
     Dosage: TAKE 1 TABLET DAILY
     Dates: start: 20080223

REACTIONS (6)
  - DIARRHOEA [None]
  - HALO VISION [None]
  - PHARMACEUTICAL PRODUCT COMPLAINT [None]
  - THERAPEUTIC AGENT TOXICITY [None]
  - VISUAL ACUITY REDUCED [None]
  - XANTHOPSIA [None]
